FAERS Safety Report 6786973-0 (Version None)
Quarter: 2010Q2

REPORT INFORMATION
  Report Type: 
  Country: None (occurrence: None)
  Receive Date: 20100623
  Receipt Date: 20100616
  Transmission Date: 20101027
  Serious: Yes (Death)
  Sender: FDA-Public Use
  Company Number: JP-GENENTECH-303256

PATIENT
  Sex: Female

DRUGS (1)
  1. ALTEPLASE [Suspect]
     Indication: CEREBRAL INFARCTION
     Dosage: UNK
     Route: 042
     Dates: start: 20100608, end: 20100608

REACTIONS (2)
  - MYOCARDIAL INFARCTION [None]
  - MYOCARDIAL RUPTURE [None]
